FAERS Safety Report 5447533-7 (Version None)
Quarter: 2007Q3

REPORT INFORMATION
  Report Type: 
  Country: None (occurrence: None)
  Receive Date: 20070910
  Receipt Date: 20070831
  Transmission Date: 20080115
  Serious: Yes (Hospitalization, Disabling, Other)
  Sender: FDA-Public Use
  Company Number: B0486209A

PATIENT
  Age: 69 Year
  Sex: Female
  Weight: 86 kg

DRUGS (9)
  1. ROSIGLITAZONE [Suspect]
     Indication: DRUG USE FOR UNKNOWN INDICATION
     Route: 048
     Dates: start: 20070802, end: 20070806
  2. ADIZEM [Concomitant]
     Dosage: 240MG PER DAY
     Route: 065
  3. CODEINE PHOSPHATE AND ACETAMINOPHEN [Concomitant]
     Route: 048
  4. GAVISCON [Concomitant]
     Route: 048
  5. GTN-S [Concomitant]
     Route: 060
  6. METFORMIN HCL [Concomitant]
     Dosage: 200MG THREE TIMES PER DAY
     Route: 048
  7. QUININE SULFATE [Concomitant]
     Route: 048
  8. TRAZODONE HCL [Concomitant]
     Dosage: 50MG PER DAY
     Route: 048
     Dates: start: 20050310
  9. ZOTON [Concomitant]
     Route: 048
     Dates: start: 19990308

REACTIONS (2)
  - CHEST PAIN [None]
  - MYOCARDIAL ISCHAEMIA [None]
